FAERS Safety Report 7574465-0 (Version None)
Quarter: 2011Q2

REPORT INFORMATION
  Report Type: 
  Country: None (occurrence: None)
  Receive Date: 20110621
  Receipt Date: 20110606
  Transmission Date: 20111010
  Serious: Yes (Death)
  Sender: FDA-Public Use
  Company Number: 2011MA006864

PATIENT
  Age: 4 Month
  Sex: Male

DRUGS (6)
  1. METHOTREXATE [Concomitant]
  2. DEXAMETHASONE [Concomitant]
  3. HYDROCORTISONE 1%-P CREAM [Suspect]
     Dosage: 10 MG;
  4. ELSPAR [Concomitant]
  5. CYTARABINE [Concomitant]
  6. LIPOSOMAL CYTARABINE [Concomitant]

REACTIONS (5)
  - MULTI-ORGAN FAILURE [None]
  - PNEUMONIA CYTOMEGALOVIRAL [None]
  - SECONDARY ADRENOCORTICAL INSUFFICIENCY [None]
  - HYPOGLYCAEMIA [None]
  - ECTHYMA [None]
